FAERS Safety Report 7552169-8 (Version None)
Quarter: 2011Q2

REPORT INFORMATION
  Report Type: 
  Country: None (occurrence: None)
  Receive Date: 20110616
  Receipt Date: 20030902
  Transmission Date: 20111010
  Serious: Yes (Hospitalization)
  Sender: FDA-Public Use
  Company Number: PHHO2003JP11233

PATIENT
  Sex: Female
  Weight: 61 kg

DRUGS (14)
  1. PROTECADIN [Concomitant]
  2. DOGMATYL [Suspect]
     Indication: DEPRESSION
     Dosage: 150 MG, BID
     Route: 048
     Dates: start: 20010324
  3. ADETPHOS [Concomitant]
     Indication: DIZZINESS
  4. RISUMIC [Concomitant]
     Indication: DIZZINESS
  5. METHYCOBAL [Concomitant]
     Indication: DIZZINESS
  6. LENDORMIN [Concomitant]
     Indication: SLEEP DISORDER
  7. MERISLON [Suspect]
     Indication: DIZZINESS
     Dosage: 36 MG, UNK
     Route: 048
     Dates: start: 20010324
  8. HALCION [Suspect]
     Indication: SLEEP DISORDER
     Dosage: .50 MG, DAILY
     Route: 048
     Dates: start: 19991002, end: 20020907
  9. BUFFERIN [Suspect]
     Dosage: 81 MG, UNK
     Route: 048
     Dates: start: 20010324
  10. ALINAMIN F [Suspect]
     Indication: DIZZINESS
     Dosage: 75 MG, UNK
     Route: 048
     Dates: start: 20000909
  11. METLIGINE [Concomitant]
     Indication: DIZZINESS
  12. LOCHOLEST [Suspect]
     Indication: HYPERCHOLESTEROLAEMIA
     Dosage: 30 MG, UNK
     Dates: start: 20001028, end: 20021019
  13. CEPHADOL [Concomitant]
  14. CHOUTOUSAN [Concomitant]

REACTIONS (5)
  - ORTHOSTATIC HYPOTENSION [None]
  - NAUSEA [None]
  - DIZZINESS [None]
  - TINNITUS [None]
  - GASTRITIS [None]
